FAERS Safety Report 10467335 (Version 5)
Quarter: 2015Q1

REPORT INFORMATION
  Report Type: Spontaneous
  Country: GB (occurrence: GB)
  Receive Date: 20140922
  Receipt Date: 20150226
  Transmission Date: 20150720
  Serious: Yes (Hospitalization, Other)
  Sender: FDA-Public Use
  Company Number: GB-TEVA-509383ISR

PATIENT
  Sex: Male

DRUGS (1)
  1. BACLOFEN. [Suspect]
     Active Substance: BACLOFEN
     Indication: PRODUCT USED FOR UNKNOWN INDICATION
     Dosage: 2000UG/ML INJECTION
     Route: 038

REACTIONS (11)
  - Implant site extravasation [Unknown]
  - Hypertonia [Unknown]
  - Emotional distress [Unknown]
  - Twiddler^s syndrome [Unknown]
  - Drug withdrawal syndrome [Unknown]
  - Implant site swelling [Unknown]
  - Device breakage [Unknown]
  - Cerebrospinal fluid leakage [Unknown]
  - Muscle spasticity [Unknown]
  - Underdose [Unknown]
  - Device inversion [Unknown]
